FAERS Safety Report 6603458-2 (Version None)
Quarter: 2010Q1

REPORT INFORMATION
  Report Type: 
  Country: None (occurrence: None)
  Receive Date: 20100226
  Receipt Date: 20090612
  Transmission Date: 20100710
  Serious: No
  Sender: FDA-Public Use
  Company Number: A0791824A

PATIENT
  Age: 32 Year
  Sex: Female

DRUGS (1)
  1. VALTREX [Suspect]
     Indication: GENITAL HERPES
     Dosage: 500MG UNKNOWN
     Route: 048

REACTIONS (7)
  - ASTHENIA [None]
  - HYPERSENSITIVITY [None]
  - PALPITATIONS [None]
  - POLLAKIURIA [None]
  - PYREXIA [None]
  - SWOLLEN TONGUE [None]
  - URTICARIA [None]
